FAERS Safety Report 5108299-3 (Version None)
Quarter: 2006Q3

REPORT INFORMATION
  Report Type: 
  Country: None (occurrence: None)
  Receive Date: 20060914
  Receipt Date: 20060914
  Transmission Date: 20061208
  Serious: No
  Sender: FDA-Public Use
  Company Number: None

PATIENT
  Age: 67 Year
  Sex: Female
  Weight: 127.0072 kg

DRUGS (11)
  1. HEPARIN [Suspect]
     Indication: PROPHYLAXIS
     Dosage: 5000 UNITS BID CUTANEOUS
     Route: 003
     Dates: start: 20060906, end: 20060908
  2. CEFUROXIME [Suspect]
     Indication: PNEUMONIA
     Dosage: 500 MG  BID PO
     Route: 048
     Dates: start: 20060907, end: 20060908
  3. GABAPENTIN [Concomitant]
  4. CARTIA XT [Concomitant]
  5. LEVOTHROXINE [Concomitant]
  6. AVANDIA [Concomitant]
  7. GLYBURIDE [Concomitant]
  8. LISINOPRIL [Concomitant]
  9. LOVASTATIN [Concomitant]
  10. NPH INSULIN [Concomitant]
  11. DICLOPENIC SODIUM [Concomitant]

REACTIONS (4)
  - CONTUSION [None]
  - CYANOSIS [None]
  - OEDEMA PERIPHERAL [None]
  - RASH GENERALISED [None]
